FAERS Safety Report 4494423-2 (Version None)
Quarter: 2004Q4

REPORT INFORMATION
  Report Type: 
  Country: None (occurrence: None)
  Receive Date: 20041102
  Receipt Date: 20041018
  Transmission Date: 20050328
  Serious: Yes (Hospitalization)
  Sender: FDA-Public Use
  Company Number: JP_041004702

PATIENT
  Age: 61 Year
  Sex: Male

DRUGS (1)
  1. GEMZAR [Suspect]
     Indication: PANCREATIC CARCINOMA
     Dosage: 1200 MG DAY
     Dates: start: 20040924, end: 20040924

REACTIONS (2)
  - ANGINA PECTORIS [None]
  - CARDIAC DISORDER [None]
